FAERS Safety Report 14193102 (Version 1)
Quarter: 2017Q4

REPORT INFORMATION
  Report Type: Spontaneous
  Country: US (occurrence: US)
  Receive Date: 20171115
  Receipt Date: 20171115
  Transmission Date: 20180321
  Serious: Yes (Disabling)
  Sender: FDA-Public Use
  Company Number: US-PFIZER INC-2017488232

PATIENT
  Age: 49 Year
  Sex: Female

DRUGS (2)
  1. NEURONTIN [Suspect]
     Active Substance: GABAPENTIN
     Indication: NEURALGIA
     Dosage: 600 MG, 3X/DAY
     Route: 048
     Dates: start: 2011
  2. NEURONTIN [Suspect]
     Active Substance: GABAPENTIN
     Dosage: 2400 MG, DAILY (INCREASED HER DOSE OF NEURONTIN TO 4 CAPSULES A DAY INSTEAD OF JUST 3)

REACTIONS (4)
  - Gait disturbance [Unknown]
  - Drug ineffective for unapproved indication [Not Recovered/Not Resolved]
  - Dysstasia [Unknown]
  - Burning sensation [Not Recovered/Not Resolved]

NARRATIVE: CASE EVENT DATE: 2011
